FAERS Safety Report 4392128-X (Version None)
Quarter: 2004Q3

REPORT INFORMATION
  Report Type: 
  Country: None (occurrence: None)
  Receive Date: 20040702
  Receipt Date: 20040702
  Transmission Date: 20050211
  Serious: No
  Sender: FDA-Public Use
  Company Number: None

PATIENT
  Age: 74 Year
  Sex: Female

DRUGS (3)
  1. TAXOTERE [Suspect]
  2. CARBOPLATIN [Suspect]
  3. HERCEPTIN [Suspect]

REACTIONS (2)
  - DYSPNOEA [None]
  - SUPRAVENTRICULAR TACHYCARDIA [None]
